FAERS Safety Report 6983909-4 (Version None)
Quarter: 2010Q3

REPORT INFORMATION
  Report Type: 
  Country: None (occurrence: None)
  Receive Date: 20100914
  Receipt Date: 20090423
  Transmission Date: 20110219
  Serious: No
  Sender: FDA-Public Use
  Company Number: US-WYE-H09116309

PATIENT
  Age: 83 Year
  Sex: Female
  Weight: 68.1 kg

DRUGS (1)
  1. ADVIL LIQUI-GELS [Suspect]
     Indication: BACK PAIN
     Route: 048
     Dates: start: 20090410, end: 20090422

REACTIONS (3)
  - EYE OEDEMA [None]
  - OVERDOSE [None]
  - SWELLING FACE [None]
